FAERS Safety Report 18051773 (Version 1)
Quarter: 2020Q3

REPORT INFORMATION
  Report Type: Spontaneous
  Country: US (occurrence: US)
  Receive Date: 20200721
  Receipt Date: 20200721
  Transmission Date: 20201103
  Serious: No
  Sender: FDA-Public Use
  Company Number: US-PFIZER INC-2020277191

PATIENT
  Age: 59 Year
  Sex: Female
  Weight: 54.43 kg

DRUGS (1)
  1. PREMPRO [Suspect]
     Active Substance: ESTROGENS, CONJUGATED\MEDROXYPROGESTERONE ACETATE
     Indication: PREMATURE MENOPAUSE
     Dosage: 0.45 MG [0.45 MG EVERY DAY BUT IS TAKING EVERY TWO DAYS]

REACTIONS (3)
  - Drug withdrawal syndrome [Unknown]
  - Discomfort [Unknown]
  - Intentional product misuse [Unknown]
